FAERS Safety Report 9421038 (Version 1)
Quarter: 2013Q3

REPORT INFORMATION
  Report Type: Spontaneous
  Country: US (occurrence: US)
  Receive Date: 20130725
  Receipt Date: 20130725
  Transmission Date: 20140515
  Serious: No
  Sender: FDA-Public Use
  Company Number: US-009507513-1307USA011851

PATIENT
  Sex: Female

DRUGS (14)
  1. IMDUR [Suspect]
     Indication: HYPERTENSION
     Dosage: 60 MG, QD
     Route: 048
  2. COZAAR [Suspect]
     Dosage: 50 MG, QD
     Route: 048
  3. COUMADIN [Concomitant]
  4. BENADRYL [Concomitant]
  5. LIDOCAINE [Concomitant]
  6. ACHROMYCIN V [Concomitant]
  7. ACCUPRIL [Concomitant]
  8. CEFTAZIDIME [Concomitant]
  9. IODINE [Concomitant]
  10. LEVAQUIN [Concomitant]
  11. GLUCOTROL [Concomitant]
  12. PREVACID [Concomitant]
  13. ASPIRIN [Concomitant]
  14. TEMARIL [Concomitant]

REACTIONS (10)
  - Adverse event [Not Recovered/Not Resolved]
  - Fall [Not Recovered/Not Resolved]
  - Haemorrhage [Unknown]
  - Gait disturbance [Unknown]
  - Paralysis [Unknown]
  - Overdose [Unknown]
  - Loss of consciousness [Unknown]
  - Blood pressure decreased [Unknown]
  - Lip swelling [Unknown]
  - Asthenia [Unknown]
